FAERS Safety Report 10789890 (Version 8)
Quarter: 2021Q3

REPORT INFORMATION
  Report Type: Spontaneous
  Country: JP (occurrence: JP)
  Receive Date: 20150212
  Receipt Date: 20210830
  Transmission Date: 20211014
  Serious: Yes (Hospitalization, Disabling, Other)
  Sender: FDA-Public Use
  Company Number: PHHY2014JP144011

PATIENT
  Age: 67 Year
  Sex: Female
  Weight: 41 kg

DRUGS (3)
  1. EXEMESTANE. [Concomitant]
     Active Substance: EXEMESTANE
     Indication: BREAST CANCER METASTATIC
     Dosage: UNK
     Route: 065
  2. AFINITOR [Suspect]
     Active Substance: EVEROLIMUS
     Indication: BREAST CANCER METASTATIC
     Dosage: 10 MG, QD
     Route: 048
     Dates: start: 20140808, end: 20141027
  3. EXEMESTANE. [Concomitant]
     Active Substance: EXEMESTANE
     Dosage: UNK
     Route: 065

REACTIONS (16)
  - Interstitial lung disease [Recovered/Resolved with Sequelae]
  - Pulmonary alveolar haemorrhage [Recovered/Resolved with Sequelae]
  - Decreased immune responsiveness [Unknown]
  - Tachycardia [Unknown]
  - Pneumomediastinum [Recovering/Resolving]
  - Body temperature increased [Unknown]
  - Depression [Recovered/Resolved]
  - Dyspnoea [Unknown]
  - Subcutaneous emphysema [Recovering/Resolving]
  - Pneumothorax [Recovering/Resolving]
  - Cough [Unknown]
  - Decreased appetite [Recovered/Resolved]
  - Hyperglycaemia [Unknown]
  - Tachypnoea [Unknown]
  - Pneumocystis jirovecii pneumonia [Recovered/Resolved with Sequelae]
  - Diabetes mellitus inadequate control [Unknown]

NARRATIVE: CASE EVENT DATE: 20141012
